FAERS Safety Report 16012530 (Version 1)
Quarter: 2019Q1

REPORT INFORMATION
  Report Type: Spontaneous
  Country: US (occurrence: US)
  Receive Date: 20190131
  Receipt Date: 20190131
  Transmission Date: 20190418
  Serious: No
  Sender: FDA-Public Use
  Company Number: None

PATIENT
  Sex: Female

DRUGS (9)
  1. LOSARTAN. [Concomitant]
     Active Substance: LOSARTAN
  2. ETHAMBUTOL [Concomitant]
     Active Substance: ETHAMBUTOL HYDROCHLORIDE
  3. AMIKACIN SULFATE. [Suspect]
     Active Substance: AMIKACIN SULFATE
     Indication: BRONCHIECTASIS
     Dosage: ?          OTHER FREQUENCY:3X WEEK;?
     Route: 042
     Dates: start: 20181026, end: 20190129
  4. SUMATRICTAN [Concomitant]
  5. TIZANICINE [Concomitant]
  6. ALBUTEROL. [Concomitant]
     Active Substance: ALBUTEROL
  7. ZITHROMAX [Concomitant]
     Active Substance: AZITHROMYCIN DIHYDRATE
  8. FAMOTIDINE. [Concomitant]
     Active Substance: FAMOTIDINE
  9. TOPAMAX [Concomitant]
     Active Substance: TOPIRAMATE

REACTIONS (2)
  - Unevaluable event [None]
  - Tinnitus [None]
